FAERS Safety Report 6033003-4 (Version None)
Quarter: 2009Q1

REPORT INFORMATION
  Report Type: 
  Country: None (occurrence: None)
  Receive Date: 20090109
  Receipt Date: 20081226
  Transmission Date: 20090719
  Serious: Yes (Death, Life-Threatening)
  Sender: FDA-Public Use
  Company Number: JP-BRISTOL-MYERS SQUIBB COMPANY-14430581

PATIENT
  Age: 70 Year
  Sex: Male

DRUGS (3)
  1. ERBITUX [Suspect]
     Indication: COLON CANCER
     Route: 042
     Dates: start: 20081126, end: 20081126
  2. POLARAMINE [Concomitant]
     Indication: PREMEDICATION
     Dosage: INJECTION
     Route: 042
  3. DECADRON [Concomitant]
     Indication: PREMEDICATION
     Dosage: INJECTION
     Route: 042

REACTIONS (1)
  - DYSPNOEA [None]
